FAERS Safety Report 8290178-4 (Version None)
Quarter: 2012Q2

REPORT INFORMATION
  Report Type: 
  Country: None (occurrence: None)
  Receive Date: 20120417
  Receipt Date: 20120404
  Transmission Date: 20120825
  Serious: Yes (Other)
  Sender: FDA-Public Use
  Company Number: JP-ACTELION-A-CH2012-64000

PATIENT
  Age: 58 Year
  Sex: Female

DRUGS (2)
  1. TRACLEER [Suspect]
     Dosage: 62.5 MG, UNK
     Route: 048
  2. TRACLEER [Suspect]
     Indication: SKIN ULCER
     Dosage: 125 MG, UNK
     Route: 048

REACTIONS (4)
  - CARDIOMEGALY [None]
  - PERIPHERAL COLDNESS [None]
  - CARDIAC FAILURE ACUTE [None]
  - DYSPNOEA EXERTIONAL [None]
